APPROVED DRUG PRODUCT: POTASSIUM CHLORIDE
Active Ingredient: POTASSIUM CHLORIDE
Strength: 20MEQ
Dosage Form/Route: TABLET, EXTENDED RELEASE;ORAL
Application: A210098 | Product #001
Applicant: CHARTWELL RX SCIENCES LLC
Approved: Apr 26, 2019 | RLD: No | RS: No | Type: DISCN